FAERS Safety Report 15602546 (Version 1)
Quarter: 2018Q4

REPORT INFORMATION
  Report Type: Spontaneous
  Country: FR (occurrence: FR)
  Receive Date: 20181109
  Receipt Date: 20181109
  Transmission Date: 20190205
  Serious: Yes (Other)
  Sender: FDA-Public Use
  Company Number: FR-JNJFOC-20181104008

PATIENT
  Sex: Female
  Weight: 3.95 kg

DRUGS (2)
  1. INFLIXIMAB, RECOMBINANT [Suspect]
     Active Substance: INFLIXIMAB
     Indication: CROHN^S DISEASE
     Route: 064
  2. AZATHIOPRINE. [Suspect]
     Active Substance: AZATHIOPRINE
     Indication: CROHN^S DISEASE
     Route: 065

REACTIONS (5)
  - Lymphopenia [Unknown]
  - Congenital toxoplasmosis [Unknown]
  - Foetal exposure during pregnancy [Recovered/Resolved]
  - Hypogammaglobulinaemia [Unknown]
  - Exposure via breast milk [Unknown]
